FAERS Safety Report 8900720 (Version 2)
Quarter: 2012Q4

REPORT INFORMATION
  Report Type: Report from Study
  Country: JP (occurrence: JP)
  Receive Date: 20121109
  Receipt Date: 20121203
  Transmission Date: 20130627
  Serious: Yes (Hospitalization)
  Sender: FDA-Public Use
  Company Number: JP-MYLANLABS-2012S1022506

PATIENT
  Age: 81 Year
  Sex: Female
  Weight: 49 kg

DRUGS (19)
  1. EPIRUBICIN [Suspect]
     Indication: HEPATIC NEOPLASM MALIGNANT
     Route: 013
     Dates: start: 20121022, end: 20121022
  2. TATHION [Concomitant]
     Indication: HEPATIC CIRRHOSIS
     Route: 048
  3. METHYCOBAL [Concomitant]
     Indication: HYPOAESTHESIA
     Route: 048
  4. BIOFERMIN /00275501/ [Concomitant]
     Indication: CONSTIPATION PROPHYLAXIS
     Route: 048
  5. EDIROL [Concomitant]
     Indication: OSTEOPOROSIS
     Route: 048
  6. AMLODIN [Concomitant]
     Indication: HYPERTENSION
     Route: 048
  7. TALION /01587402/ [Concomitant]
     Indication: PRURITUS GENERALISED
     Route: 048
  8. PARIET [Concomitant]
     Indication: GASTRITIS
     Route: 048
  9. ACTONEL [Concomitant]
     Indication: OSTEOPOROSIS
     Route: 048
  10. KENEI /00200601/ [Concomitant]
     Indication: THERAPEUTIC EMBOLISATION
     Route: 054
  11. ACETATED RINGER [Concomitant]
     Indication: THERAPEUTIC EMBOLISATION
     Route: 041
     Dates: start: 20121022, end: 20121022
  12. ISOTONIC SODIUM CHLORIDE SOLUTION [Concomitant]
     Indication: THERAPEUTIC EMBOLISATION
     Route: 041
     Dates: start: 20121022
  13. RASENAZOLIN [Concomitant]
     Indication: THERAPEUTIC EMBOLISATION
     Route: 041
     Dates: start: 20121022
  14. XYLOCAINE [Concomitant]
     Indication: THERAPEUTIC EMBOLISATION
     Route: 058
     Dates: start: 20121022, end: 20121022
  15. ATARAX-P /00058402/ [Concomitant]
     Indication: THERAPEUTIC EMBOLISATION
     Route: 030
     Dates: start: 20121022, end: 20121022
  16. PENTAGIN /00052102/ [Concomitant]
     Indication: THERAPEUTIC EMBOLISATION
     Route: 030
     Dates: start: 20121022, end: 20121022
  17. OMNIPAQUE [Concomitant]
     Indication: THERAPEUTIC EMBOLISATION
     Route: 041
  18. OMNIPAQUE [Concomitant]
     Indication: THERAPEUTIC EMBOLISATION
     Route: 041
     Dates: start: 20121022, end: 20121022
  19. LIPIODOL [Concomitant]
     Indication: PRODUCT USED FOR UNKNOWN INDICATION
     Dates: start: 20121022, end: 20121022

REACTIONS (1)
  - Cholecystitis acute [Recovered/Resolved]
